FAERS Safety Report 8447646-1 (Version None)
Quarter: 2012Q2

REPORT INFORMATION
  Report Type: 
  Country: None (occurrence: None)
  Receive Date: 20120619
  Receipt Date: 20120608
  Transmission Date: 20120825
  Serious: Yes (Death, Hospitalization)
  Sender: FDA-Public Use
  Company Number: JP-BRISTOL-MYERS SQUIBB COMPANY-16618373

PATIENT
  Age: 75 Year
  Sex: Male
  Weight: 57 kg

DRUGS (10)
  1. ERBITUX [Suspect]
     Indication: COLORECTAL CANCER RECURRENT
     Route: 042
     Dates: start: 20110209, end: 20120118
  2. MAGLAX [Concomitant]
  3. PRAVASTATIN [Concomitant]
  4. PURSENNID [Concomitant]
  5. MUCOSTA [Concomitant]
  6. CLARITIN [Concomitant]
  7. ACECOL [Concomitant]
  8. FUROSEMIDE [Concomitant]
  9. DEPAS [Concomitant]
  10. RABEPRAZOLE SODIUM [Concomitant]

REACTIONS (1)
  - LUNG DISORDER [None]
